FAERS Safety Report 7867118-2 (Version None)
Quarter: 2011Q4

REPORT INFORMATION
  Report Type: 
  Country: None (occurrence: None)
  Receive Date: 20111028
  Receipt Date: 20111021
  Transmission Date: 20120403
  Serious: Yes (Hospitalization)
  Sender: FDA-Public Use
  Company Number: NL-BRISTOL-MYERS SQUIBB COMPANY-16191546

PATIENT
  Age: 69 Year
  Sex: Female

DRUGS (14)
  1. PROPRANOLOL [Concomitant]
  2. LEVOTHYROXINE SODIUM [Concomitant]
  3. INSULIN ASPART [Concomitant]
  4. VITAMIN B COMPLEX CAP [Concomitant]
  5. INSULIN ASPART [Concomitant]
  6. METHIMAZOLE [Concomitant]
  7. FERROUS FUMARATE [Concomitant]
  8. INSULIN GLARGINE [Concomitant]
  9. SPIRONOLACTONE [Concomitant]
  10. HALOPERIDOL [Concomitant]
  11. ABILIFY [Suspect]
     Indication: ABNORMAL BEHAVIOUR
     Dates: start: 20090216, end: 20110907
  12. VALPROIC ACID [Concomitant]
  13. CHOLESTYRAMINE [Concomitant]
  14. FOLIC ACID [Concomitant]

REACTIONS (1)
  - ASCITES [None]
